FAERS Safety Report 4319454-4 (Version None)
Quarter: 2004Q1

REPORT INFORMATION
  Report Type: 
  Country: None (occurrence: None)
  Receive Date: 20040318
  Receipt Date: 20040310
  Transmission Date: 20041129
  Serious: Yes (Other)
  Sender: FDA-Public Use
  Company Number: 2004-UK-00235UK

PATIENT
  Age: 27 Year
  Sex: Female

DRUGS (2)
  1. MORPHINE [Suspect]
     Indication: STATUS EPILEPTICUS
  2. MIDAZOLAM (MIZADOLAM) [Concomitant]

REACTIONS (3)
  - HYPOTENSION [None]
  - PRURITUS [None]
  - RASH ERYTHEMATOUS [None]
